FAERS Safety Report 14338783 (Version 1)
Quarter: 2017Q4

REPORT INFORMATION
  Report Type: Spontaneous
  Country: IT (occurrence: IT)
  Receive Date: 20171229
  Receipt Date: 20171229
  Transmission Date: 20180321
  Serious: Yes (Hospitalization, Other)
  Sender: FDA-Public Use
  Company Number: IT-BAUSCH-BL-2017-034978

PATIENT
  Age: 80 Year
  Sex: Female

DRUGS (4)
  1. ESOPRAL [Concomitant]
     Active Substance: ESOMEPRAZOLE MAGNESIUM
     Indication: PRODUCT USED FOR UNKNOWN INDICATION
     Route: 048
  2. LORAZEPAM. [Suspect]
     Active Substance: LORAZEPAM
     Indication: INSOMNIA
     Route: 048
     Dates: end: 20170825
  3. PRAZENE [Suspect]
     Active Substance: PRAZEPAM
     Indication: ANXIETY
     Route: 048
     Dates: end: 20170825
  4. ORAMORPH [Suspect]
     Active Substance: MORPHINE SULFATE
     Indication: ARTHRALGIA
     Dosage: AS NEEDED (PRN)
     Route: 048
     Dates: start: 20170812, end: 20170825

REACTIONS (6)
  - Miosis [Recovering/Resolving]
  - Bradypnoea [Recovering/Resolving]
  - Toxicity to various agents [Recovering/Resolving]
  - Hyperhidrosis [Recovering/Resolving]
  - Respiratory failure [Recovering/Resolving]
  - Hypercapnia [Recovering/Resolving]

NARRATIVE: CASE EVENT DATE: 20170825
